FAERS Safety Report 13096892 (Version 1)
Quarter: 2017Q1

REPORT INFORMATION
  Report Type: Spontaneous
  Country: US (occurrence: US)
  Receive Date: 20170106
  Receipt Date: 20170106
  Transmission Date: 20170428
  Serious: Yes (Hospitalization)
  Sender: FDA-Public Use
  Company Number: None

PATIENT
  Age: 45 Year
  Sex: Female
  Weight: 67.5 kg

DRUGS (1)
  1. SEROQUEL XR [Suspect]
     Active Substance: QUETIAPINE FUMARATE
     Indication: BIPOLAR DISORDER
     Dosage: ?          QUANTITY:2 TABLET(S);?
     Route: 048
     Dates: start: 20160816, end: 20161112

REACTIONS (13)
  - Pyrexia [None]
  - Pain [None]
  - Thirst [None]
  - Somnolence [None]
  - Vision blurred [None]
  - Eye pain [None]
  - Weight increased [None]
  - Amenorrhoea [None]
  - Increased appetite [None]
  - Abdominal discomfort [None]
  - Abdominal pain upper [None]
  - Speech disorder [None]
  - Chills [None]

NARRATIVE: CASE EVENT DATE: 20160816
